FAERS Safety Report 12940970 (Version 1)
Quarter: 2016Q4

REPORT INFORMATION
  Report Type: Report from Study
  Country: US (occurrence: US)
  Receive Date: 20161115
  Receipt Date: 20161115
  Transmission Date: 20170207
  Serious: No
  Sender: FDA-Public Use
  Company Number: US-AMGEN-USASL2016149018

PATIENT
  Age: 55 Year
  Sex: Female
  Weight: 126.98 kg

DRUGS (16)
  1. MTX [Concomitant]
     Active Substance: METHOTREXATE SODIUM
     Dosage: 25 MG, QWK
  2. DIAZEPAM. [Concomitant]
     Active Substance: DIAZEPAM
     Dosage: 2 MG, QD
  3. POTASSIUM [Concomitant]
     Active Substance: POTASSIUM
     Dosage: 10 MEQ, QD
  4. SIMVASTATIN. [Concomitant]
     Active Substance: SIMVASTATIN
     Dosage: 40 MG, QD
  5. LYRICA [Concomitant]
     Active Substance: PREGABALIN
     Dosage: 600 MG, QD
  6. LISINOPRIL. [Concomitant]
     Active Substance: LISINOPRIL
     Dosage: 5 MG, QD
  7. NOVOLOG [Concomitant]
     Active Substance: INSULIN ASPART
     Dosage: 175 UNIT, QD
  8. FOLIC ACID. [Concomitant]
     Active Substance: FOLIC ACID
     Dosage: 1 MG, BID
  9. VENLAFAXINE [Concomitant]
     Active Substance: VENLAFAXINE HYDROCHLORIDE
     Dosage: 150 MG, BID
  10. MODAFINIL. [Concomitant]
     Active Substance: MODAFINIL
     Dosage: 100 MG, QD
  11. FUROSEMIDE. [Concomitant]
     Active Substance: FUROSEMIDE
     Dosage: 40 MG, QD
  12. MELOXICAM. [Concomitant]
     Active Substance: MELOXICAM
     Dosage: 15 MG, QD
  13. ROPINIROLE. [Concomitant]
     Active Substance: ROPINIROLE
     Dosage: 0.5 MG, QHS (3 TABLETS)
  14. ENBREL [Suspect]
     Active Substance: ETANERCEPT
     Indication: PSORIATIC ARTHROPATHY
     Dosage: 50 MG, QWK
     Route: 065
     Dates: start: 20161018
  15. BUPROPION. [Concomitant]
     Active Substance: BUPROPION
     Dosage: 150 MG, QD (3 TABLETS)
  16. CARVEDILOL. [Concomitant]
     Active Substance: CARVEDILOL
     Dosage: 6.25 MG, BID

REACTIONS (3)
  - Underdose [Unknown]
  - Injection site discomfort [Unknown]
  - Wrong technique in product usage process [Unknown]

NARRATIVE: CASE EVENT DATE: 201610
